FAERS Safety Report 7352585-3 (Version None)
Quarter: 2011Q1

REPORT INFORMATION
  Report Type: 
  Country: None (occurrence: None)
  Receive Date: 20110310
  Receipt Date: 20110310
  Transmission Date: 20110831
  Serious: Yes (Other)
  Sender: FDA-Public Use
  Company Number: None

PATIENT
  Age: 69 Year
  Sex: Female
  Weight: 67.586 kg

DRUGS (1)
  1. CRESTOR [Suspect]
     Indication: BLOOD CHOLESTEROL
     Dates: start: 20091125, end: 20100915

REACTIONS (6)
  - PAIN IN EXTREMITY [None]
  - PAIN [None]
  - MUSCLE TIGHTNESS [None]
  - MYALGIA [None]
  - LYMPHADENOPATHY [None]
  - PHARYNGEAL OEDEMA [None]
